FAERS Safety Report 5531745-8 (Version None)
Quarter: 2007Q4

REPORT INFORMATION
  Report Type: 
  Country: None (occurrence: None)
  Receive Date: 20071203
  Receipt Date: 20071127
  Transmission Date: 20080405
  Serious: Yes (Life-Threatening)
  Sender: FDA-Public Use
  Company Number: GB-ASTRAZENECA-2007GB02432

PATIENT
  Age: 55 Year
  Sex: Male
  Weight: 89.5 kg

DRUGS (5)
  1. QUETIAPINE FUMARATE [Suspect]
     Indication: SCHIZOPHRENIA
     Route: 048
     Dates: start: 20060301, end: 20071025
  2. CARBAMAZEPINE [Concomitant]
     Route: 065
  3. DIAZEPAM [Concomitant]
     Route: 065
  4. OXYBUTYNIN CHLORIDE [Concomitant]
     Route: 065
  5. SULPIRIDE [Concomitant]
     Route: 065

REACTIONS (4)
  - ASTHENIA [None]
  - GAIT DISTURBANCE [None]
  - STUPOR [None]
  - URINARY INCONTINENCE [None]
